FAERS Safety Report 7631497-1 (Version None)
Quarter: 2011Q3

REPORT INFORMATION
  Report Type: 
  Country: None (occurrence: None)
  Receive Date: 20110715
  Receipt Date: 20110629
  Transmission Date: 20111222
  Serious: Yes (Hospitalization, Other)
  Sender: FDA-Public Use
  Company Number: AMAG201100125

PATIENT
  Age: 75 Year
  Sex: Female
  Weight: 66.7 kg

DRUGS (11)
  1. FLONASE (FLUTICASONE PROPIONATE) AEROSOL (SPRAY AND INHALATION) [Concomitant]
  2. FEBUXOSTAT (FEBUXOSTAT) [Concomitant]
  3. COLCHICINE [Concomitant]
  4. ROSUVASTATIN [Concomitant]
  5. UTRAM (TAMADOL HYDROCHLORIDE) [Concomitant]
  6. FERAHEME [Suspect]
     Indication: IRON DEFICIENCY ANAEMIA
     Dosage: 4 ML, SINGLE, INTRAVENOUS
     Route: 042
     Dates: start: 20110315, end: 20110315
  7. TOPROL-XL [Concomitant]
  8. CATAPRES [Concomitant]
  9. SINGULAIR [Concomitant]
  10. MICARDS (TELMISARTAN) [Concomitant]
  11. AMLODIPINE (AMLODIPINE MELEATE) [Concomitant]

REACTIONS (11)
  - RESPIRATORY DISTRESS [None]
  - ERYTHEMA [None]
  - HYPERTENSION [None]
  - DRUG HYPERSENSITIVITY [None]
  - COUGH [None]
  - HYPOXIA [None]
  - UNRESPONSIVE TO STIMULI [None]
  - CHEST PAIN [None]
  - HYPERHIDROSIS [None]
  - DYSPNOEA [None]
  - NAUSEA [None]
